FAERS Safety Report 8502703-6 (Version None)
Quarter: 2012Q3

REPORT INFORMATION
  Report Type: 
  Country: None (occurrence: None)
  Receive Date: 20120706
  Receipt Date: 20120706
  Transmission Date: 20120928
  Serious: No
  Sender: FDA-Public Use
  Company Number: None

PATIENT
  Sex: Female
  Weight: 49.8957 kg

DRUGS (2)
  1. CLONAZEPAM [Suspect]
     Dosage: 2MG ONCE AT BED EVERY PM
  2. CLONAZEPAM [Suspect]
     Indication: ANXIETY
     Dosage: 2 MG ONCE AT BED EVERY PM

REACTIONS (5)
  - DRUG DISPENSING ERROR [None]
  - PRODUCT MEASURED POTENCY ISSUE [None]
  - ECONOMIC PROBLEM [None]
  - PRODUCT TASTE ABNORMAL [None]
  - PRODUCT SUBSTITUTION ISSUE [None]
